FAERS Safety Report 7920276-3 (Version None)
Quarter: 2011Q4

REPORT INFORMATION
  Report Type: 
  Country: None (occurrence: None)
  Receive Date: 20111117
  Receipt Date: 20111102
  Transmission Date: 20120403
  Serious: Yes (Hospitalization)
  Sender: FDA-Public Use
  Company Number: FR-ROCHE-1008967

PATIENT
  Sex: Female
  Weight: 48 kg

DRUGS (2)
  1. XELODA [Suspect]
     Indication: BREAST CANCER
     Route: 048
     Dates: start: 20110126, end: 20110628
  2. VINFLUNINE [Suspect]
     Indication: BREAST CANCER
     Route: 042
     Dates: start: 20110126, end: 20110620

REACTIONS (1)
  - GENERAL PHYSICAL HEALTH DETERIORATION [None]
